FAERS Safety Report 15419614 (Version 3)
Quarter: 2019Q2

REPORT INFORMATION
  Report Type: Report from Study
  Country: JP (occurrence: JP)
  Receive Date: 20180924
  Receipt Date: 20190411
  Transmission Date: 20190711
  Serious: Yes (Hospitalization, Other)
  Sender: FDA-Public Use
  Company Number: JP-INCYTE CORPORATION-2018IN009559

PATIENT

DRUGS (2)
  1. JAKAVI [Suspect]
     Active Substance: RUXOLITINIB
     Dosage: 5 MG, QD
     Route: 048
     Dates: start: 20170905, end: 20171219
  2. JAKAVI [Suspect]
     Active Substance: RUXOLITINIB
     Indication: POLYCYTHAEMIA VERA
     Dosage: 5 MG, BID
     Route: 048
     Dates: start: 20170530, end: 20170904

REACTIONS (8)
  - Acute kidney injury [Not Recovered/Not Resolved]
  - Haemoglobin decreased [Unknown]
  - Hepatic function abnormal [Not Recovered/Not Resolved]
  - Platelet count decreased [Unknown]
  - Jaundice [Unknown]
  - Anaemia [Recovering/Resolving]
  - Fatigue [Unknown]
  - Lymphocyte count decreased [Unknown]

NARRATIVE: CASE EVENT DATE: 20170905
